FAERS Safety Report 8459287-0 (Version None)
Quarter: 2012Q2

REPORT INFORMATION
  Report Type: 
  Country: None (occurrence: None)
  Receive Date: 20120615
  Receipt Date: 20120611
  Transmission Date: 20120825
  Serious: Yes (Other)
  Sender: FDA-Public Use
  Company Number: FK201201461

PATIENT
  Age: 73 Year
  Sex: Female

DRUGS (1)
  1. CEFUROXIME [Suspect]
     Indication: MUSCULOSKELETAL PAIN
     Dosage: 1500 MG, 3 IN 1 D, INTRAVENOUS
     Route: 042
     Dates: start: 20120419, end: 20120424

REACTIONS (2)
  - DYSGEUSIA [None]
  - HYPOSMIA [None]
